FAERS Safety Report 8575535-0 (Version None)
Quarter: 2012Q3

REPORT INFORMATION
  Report Type: 
  Country: None (occurrence: None)
  Receive Date: 20120807
  Receipt Date: 20120801
  Transmission Date: 20120928
  Serious: Yes (Other)
  Sender: FDA-Public Use
  Company Number: PHHY2009BR00982

PATIENT
  Sex: Female
  Weight: 61 kg

DRUGS (9)
  1. METFORMIN HYDROCHLORIDE [Concomitant]
     Indication: DIABETES MELLITUS
     Dosage: 3 DF, (3 TABLETS DAILY (IN THE MORNING, IN THE LUNCH AND AFTERNOON)
  2. FORMOTEROL FUMARATE [Suspect]
     Dosage: 2 DF, QD (TOOK IN THE MORNING AND AT NIGHT)
  3. CALCIUM CARBONATE [Concomitant]
     Indication: OSTEOPENIA
     Dosage: 1 DF, (IN THE LUNCH)
  4. MEMANTINE HYDROCHLORIDE [Concomitant]
     Indication: MEMORY IMPAIRMENT
     Dosage: DOSE OF 2 TABLETS DAILY
  5. HYGROTON [Concomitant]
     Indication: HYPERTENSION
     Dosage: 1 DF, QD, IN MORNING
  6. LOSARTAN POTASSIUM [Concomitant]
     Indication: HYPERTENSION
     Dosage: 2 DF, (2 TABLETS DAILY (IN THE MORNING AND AT NIGHT))
  7. LIPITOR [Concomitant]
     Indication: BLOOD CHOLESTEROL
     Dosage: 1 DF,AT NIGHT IN ALTERNATED DAYS
  8. FORMOTEROL FUMARATE [Suspect]
     Indication: BRONCHITIS
     Dosage: 2 DF, QD (TOOK IN THE MORNING AND AT NIGHT)
     Dates: start: 20080901
  9. DAFLON 500 [Concomitant]
     Indication: VEIN DISORDER
     Dosage: 2 TABLETS DAILY (IN THE MORNING AND AT NIGHT)

REACTIONS (7)
  - SNEEZING [None]
  - PRODUCT QUALITY ISSUE [None]
  - RHINORRHOEA [None]
  - THROAT IRRITATION [None]
  - INFLUENZA [None]
  - PNEUMONIA [None]
  - GASTROINTESTINAL DISORDER [None]
